FAERS Safety Report 8234535-0 (Version None)
Quarter: 2012Q1

REPORT INFORMATION
  Report Type: 
  Country: None (occurrence: None)
  Receive Date: 20120322
  Receipt Date: 20120309
  Transmission Date: 20120608
  Serious: Yes (Hospitalization)
  Sender: FDA-Public Use
  Company Number: DSA_55666_2012

PATIENT
  Age: 52 Year
  Sex: Female

DRUGS (7)
  1. FLAGYL [Suspect]
     Indication: LOCALISED INFECTION
     Dosage: (1.2 G QD ORAL)
     Route: 048
     Dates: start: 20100531, end: 20100907
  2. TOLTERODINE TARTRATE [Concomitant]
  3. LAMOTRGINE [Concomitant]
  4. HERACILLIN  /00239102/ [Concomitant]
  5. ABSENOR  /00228501/ [Concomitant]
  6. ZOPICLEN [Concomitant]
  7. AMOXICILLIN AND CLAVULANATE POTASSIUM [Concomitant]

REACTIONS (2)
  - NEUROPATHY PERIPHERAL [None]
  - HYPOAESTHESIA [None]
